FAERS Safety Report 6436015-1 (Version None)
Quarter: 2009Q4

REPORT INFORMATION
  Report Type: 
  Country: None (occurrence: None)
  Receive Date: 20091111
  Receipt Date: 20091103
  Transmission Date: 20100525
  Serious: Yes (Other)
  Sender: FDA-Public Use
  Company Number: US-JNJFOC-20091101660

PATIENT
  Sex: Female
  Weight: 102.06 kg

DRUGS (1)
  1. DURAGESIC-100 [Suspect]
     Indication: ARTHRITIS
     Route: 062

REACTIONS (1)
  - CATARACT [None]
